FAERS Safety Report 8837707 (Version 1)
Quarter: 2012Q4

REPORT INFORMATION
  Report Type: 
  Country: US (occurrence: US)
  Receive Date: 20121012
  Receipt Date: 20121012
  Transmission Date: 20130627
  Serious: Yes (Other)
  Sender: FDA-Public Use
  Company Number: US-ROCHE-1132090

PATIENT
  Sex: Male

DRUGS (10)
  1. RITUXAN [Suspect]
     Indication: DIFFUSE LARGE B-CELL LYMPHOMA STAGE III
     Route: 050
  2. RITUXAN [Suspect]
     Route: 042
     Dates: start: 20010925
  3. KCL [Concomitant]
     Route: 042
  4. CHOPHYTOL [Concomitant]
  5. ALLOPURINOL [Concomitant]
     Route: 065
  6. BENADRYL [Concomitant]
     Route: 042
  7. ZOFRAN [Concomitant]
     Route: 042
  8. TYLENOL [Concomitant]
     Dosage: Tylenol grains 10
     Route: 065
  9. NORMAL SALINE [Concomitant]
     Route: 042
  10. DECADRON [Concomitant]
     Route: 065

REACTIONS (11)
  - Somnolence [Unknown]
  - Dry mouth [Unknown]
  - Oedema peripheral [Unknown]
  - Lymphoedema [Unknown]
  - Scrotal oedema [Unknown]
  - Faeces discoloured [Unknown]
  - Haemoglobin decreased [Unknown]
  - Haemolysis [Unknown]
  - Haematocrit decreased [Unknown]
  - Platelet count increased [Unknown]
  - White blood cell count increased [Unknown]
